FAERS Safety Report 26116003 (Version 1)
Quarter: 2025Q4

REPORT INFORMATION
  Report Type: Spontaneous
  Country: US (occurrence: US)
  Receive Date: 20251203
  Receipt Date: 20251203
  Transmission Date: 20260117
  Serious: Yes (Hospitalization, Other)
  Sender: GLAXOSMITHKLINE
  Company Number: US-GSK-US2025GSK155303

PATIENT
  Sex: Male

DRUGS (1)
  1. OJJAARA [Suspect]
     Active Substance: MOMELOTINIB DIHYDROCHLORIDE MONOHYDRATE
     Indication: Myelofibrosis
     Dosage: UNK

REACTIONS (10)
  - Stevens-Johnson syndrome [Unknown]
  - Rash [Unknown]
  - Toxic epidermal necrolysis [Unknown]
  - Infection [Unknown]
  - Delirium [Unknown]
  - Respiratory failure [Unknown]
  - Pneumonia [Unknown]
  - Infectious pleural effusion [Unknown]
  - Bladder cancer [Unknown]
  - Drug hypersensitivity [Unknown]

NARRATIVE: CASE EVENT DATE: 20231126
